FAERS Safety Report 19907093 (Version 1)
Quarter: 2021Q4

REPORT INFORMATION
  Report Type: Spontaneous
  Country: CA (occurrence: CA)
  Receive Date: 20211001
  Receipt Date: 20211001
  Transmission Date: 20220304
  Serious: Yes (Other)
  Sender: FDA-Public Use
  Company Number: CA-TEVA-2021-CA-1959186

PATIENT
  Age: 38 Year
  Sex: Female
  Weight: 71 kg

DRUGS (1)
  1. NITROFURANTOIN [Suspect]
     Active Substance: NITROFURANTOIN
     Indication: Urinary tract infection
     Dosage: 2 DOSAGE FORMS DAILY;
     Route: 065

REACTIONS (5)
  - Contusion [Unknown]
  - Fatigue [Unknown]
  - Hepatotoxicity [Unknown]
  - Jaundice [Unknown]
  - Malaise [Unknown]
